FAERS Safety Report 18326204 (Version 1)
Quarter: 2020Q3

REPORT INFORMATION
  Report Type: Spontaneous
  Country: FR (occurrence: FR)
  Receive Date: 20200929
  Receipt Date: 20200929
  Transmission Date: 20201103
  Serious: Yes (Hospitalization)
  Sender: FDA-Public Use
  Company Number: FR-JNJFOC-20200928848

PATIENT
  Age: 69 Year
  Sex: Female

DRUGS (13)
  1. SERTRALINE [Concomitant]
     Active Substance: SERTRALINE HYDROCHLORIDE
  2. PARACETAMOL [Concomitant]
     Active Substance: ACETAMINOPHEN
  3. SERESTA [Concomitant]
     Active Substance: OXAZEPAM
  4. ESIDREX [Suspect]
     Active Substance: HYDROCHLOROTHIAZIDE
     Indication: HYPERTENSION
     Route: 048
     Dates: end: 20200827
  5. LOXEN L P [Concomitant]
     Active Substance: NICARDIPINE HYDROCHLORIDE
  6. KARDEGIC [Concomitant]
     Active Substance: ASPIRIN DL-LYSINE
  7. FUNGIZONE [Suspect]
     Active Substance: AMPHOTERICIN B
     Indication: ORAL FUNGAL INFECTION
     Route: 048
     Dates: start: 20200817
  8. PRAVASTATINE SODIQUE [Concomitant]
     Active Substance: PRAVASTATIN SODIUM
  9. SOTALOL. [Concomitant]
     Active Substance: SOTALOL
  10. ESOMEPRAZOLE. [Concomitant]
     Active Substance: ESOMEPRAZOLE MAGNESIUM
  11. MOVICOL [Concomitant]
     Active Substance: POLYETHYLENE GLYCOL 3350\POTASSIUM CHLORIDE\SODIUM BICARBONATE\SODIUM CHLORIDE
  12. ENALAPRIL                          /00574902/ [Concomitant]
     Active Substance: ENALAPRIL
  13. RISPERIDONE. [Suspect]
     Active Substance: RISPERIDONE
     Indication: DEPRESSION
     Route: 048
     Dates: start: 20200812, end: 20200827

REACTIONS (4)
  - Hypokalaemia [Not Recovered/Not Resolved]
  - Off label use [Unknown]
  - Atrioventricular block second degree [Unknown]
  - Product use in unapproved indication [Unknown]

NARRATIVE: CASE EVENT DATE: 20200812
